FAERS Safety Report 5084359-0 (Version None)
Quarter: 2006Q3

REPORT INFORMATION
  Report Type: 
  Country: None (occurrence: None)
  Receive Date: 20060817
  Receipt Date: 20060817
  Transmission Date: 20061208
  Serious: Yes (Hospitalization)
  Sender: FDA-Public Use
  Company Number: None

PATIENT
  Age: 45 Year
  Sex: Female

DRUGS (1)
  1. TRIMETON [Suspect]
     Indication: HYPERSENSITIVITY
     Dosage: 10 MG INTRAVENOUS
     Route: 042
     Dates: start: 20060804, end: 20060804

REACTIONS (3)
  - HEADACHE [None]
  - RASH [None]
  - SYNCOPE [None]
